FAERS Safety Report 10040622 (Version 2)
Quarter: 2014Q2

REPORT INFORMATION
  Report Type: Spontaneous
  Country: US (occurrence: US)
  Receive Date: 20140327
  Receipt Date: 20140627
  Transmission Date: 20141212
  Serious: No
  Sender: FDA-Public Use
  Company Number: US-GLAXOSMITHKLINE-A1060823A

PATIENT
  Age: 16 Year
  Sex: Female
  Weight: 46.8 kg

DRUGS (34)
  1. MEKINIST [Suspect]
     Indication: MYXOFIBROSARCOMA
     Dosage: 2MG PER DAY
     Route: 048
     Dates: start: 20140124
  2. KEPPRA [Concomitant]
  3. PHENYTOIN [Concomitant]
  4. NEURONTIN [Concomitant]
  5. CLOBAZAM [Concomitant]
  6. ETHOSUXIMIDE [Concomitant]
  7. LACOSAMIDE [Concomitant]
  8. SYNTHROID [Concomitant]
  9. PRIMIDONE [Concomitant]
  10. PROBIOTICS [Concomitant]
  11. POTASSIUM PHOSPHATE [Concomitant]
  12. LEVETIRACETAM [Concomitant]
  13. SENNA [Concomitant]
  14. ACETAMINOPHEN [Concomitant]
  15. PYRIDOXINE [Concomitant]
  16. DIPHENHYDRAMINE [Concomitant]
  17. ONDANSETRON [Concomitant]
  18. LEVOTHYROXINE [Concomitant]
  19. LANSOPRAZOLE [Concomitant]
  20. MELATONIN [Concomitant]
  21. HEPARIN FLUSH [Concomitant]
  22. FOSPHENYTOIN [Concomitant]
  23. OXYCODONE [Concomitant]
  24. ACETAZOLAMIDE [Concomitant]
  25. CITALOPRAM [Concomitant]
  26. LORAZEPAM [Concomitant]
  27. CALCITRIOL [Concomitant]
  28. GABAPENTIN [Concomitant]
  29. PHENOBARBITAL [Concomitant]
  30. SODIUM CHLORIDE [Concomitant]
  31. MULTIVITAMIN [Concomitant]
  32. LACTOBACILLUS RHAMNOSUS [Concomitant]
  33. ERYTHROMYCIN [Concomitant]
  34. DIAZEPAM [Concomitant]

REACTIONS (3)
  - Diarrhoea [Not Recovered/Not Resolved]
  - Rash [Not Recovered/Not Resolved]
  - Rehabilitation therapy [Unknown]
